FAERS Safety Report 14371151 (Version 4)
Quarter: 2018Q3

REPORT INFORMATION
  Report Type: Report from Study
  Country: None (occurrence: US)
  Receive Date: 20180110
  Receipt Date: 20180927
  Transmission Date: 20181010
  Serious: Yes (Hospitalization, Other)
  Sender: FDA-Public Use
  Company Number: US-ABBVIE-18K-163-2214538-00

PATIENT
  Age: 80 Year
  Sex: Male

DRUGS (1)
  1. HUMIRA [Suspect]
     Active Substance: ADALIMUMAB
     Indication: PSORIASIS
     Route: 058
     Dates: start: 20170421, end: 20180412

REACTIONS (10)
  - Femur fracture [Recovered/Resolved]
  - Psoriasis [Unknown]
  - Influenza like illness [Unknown]
  - Fall [Unknown]
  - Lower limb fracture [Unknown]
  - Skin reaction [Unknown]
  - Dementia Alzheimer^s type [Unknown]
  - Infection [Recovered/Resolved]
  - Drug ineffective [Unknown]
  - Weight decreased [Unknown]

NARRATIVE: CASE EVENT DATE: 2017
